FAERS Safety Report 15459164 (Version 1)
Quarter: 2018Q4

REPORT INFORMATION
  Report Type: Spontaneous
  Country: US (occurrence: US)
  Receive Date: 20181003
  Receipt Date: 20181003
  Transmission Date: 20190204
  Serious: No
  Sender: FDA-Public Use
  Company Number: US-PFIZER INC-2018395853

PATIENT
  Age: 8 Year
  Sex: Male
  Weight: 29.5 kg

DRUGS (2)
  1. EUCRISA [Suspect]
     Active Substance: CRISABOROLE
     Indication: ECZEMA
     Dosage: UNK, 2X/DAY
     Dates: start: 2018, end: 20180915
  2. FLOVENT [Concomitant]
     Active Substance: FLUTICASONE PROPIONATE
     Indication: ASTHMA
     Dosage: 2 PUFFS, 2X/DAY

REACTIONS (5)
  - Drug ineffective [Unknown]
  - Skin fissures [Unknown]
  - Pain [Unknown]
  - Skin weeping [Unknown]
  - Skin burning sensation [Recovering/Resolving]

NARRATIVE: CASE EVENT DATE: 2018
